FAERS Safety Report 21348056 (Version 2)
Quarter: 2022Q3

REPORT INFORMATION
  Report Type: Spontaneous
  Country: US (occurrence: US)
  Receive Date: 20220919
  Receipt Date: 20220923
  Transmission Date: 20221027
  Serious: Yes (Other)
  Sender: FDA-Public Use
  Company Number: US-CELLTRION INC.-2022US014696

PATIENT

DRUGS (3)
  1. TRUXIMA [Suspect]
     Active Substance: RITUXIMAB-ABBS
     Indication: Polymyositis
     Dosage: 1000 MG X 1
     Dates: start: 20210804
  2. TRUXIMA [Suspect]
     Active Substance: RITUXIMAB-ABBS
     Dosage: 500 MG Q 6 MONTHS
     Dates: start: 20220221
  3. TRUXIMA [Suspect]
     Active Substance: RITUXIMAB-ABBS
     Dosage: 500 MG Q 6 MONTHS
     Dates: start: 20220901

REACTIONS (2)
  - Polymyositis [Unknown]
  - Off label use [Unknown]
